FAERS Safety Report 6973208-9 (Version None)
Quarter: 2010Q3

REPORT INFORMATION
  Report Type: 
  Country: None (occurrence: None)
  Receive Date: 20100909
  Receipt Date: 20100831
  Transmission Date: 20110219
  Serious: Yes (Other)
  Sender: FDA-Public Use
  Company Number: US-ABBOTT-10P-163-0667269-00

PATIENT
  Age: 22 Year
  Sex: Male

DRUGS (4)
  1. VALPROIC ACID [Suspect]
     Indication: EPILEPSY
  2. CARBAMAZEPINE [Suspect]
     Indication: EPILEPSY
  3. PHENOBARBITAL [Suspect]
     Indication: EPILEPSY
  4. ETHOSUXIMIDE [Concomitant]
     Indication: PRODUCT USED FOR UNKNOWN INDICATION

REACTIONS (1)
  - HEPATIC ADENOMA [None]
